FAERS Safety Report 9449997 (Version 1)
Quarter: 2013Q3

REPORT INFORMATION
  Report Type: Spontaneous
  Country: US (occurrence: US)
  Receive Date: 20130809
  Receipt Date: 20130809
  Transmission Date: 20140515
  Serious: Yes (Other)
  Sender: FDA-Public Use
  Company Number: US-PFIZER INC-2013230678

PATIENT
  Sex: 0

DRUGS (1)
  1. ZOSYN [Suspect]
     Dosage: 3.375 G, 3X/DAY
     Route: 042
     Dates: start: 20130801, end: 20130804

REACTIONS (3)
  - Underdose [Unknown]
  - Long QT syndrome [Unknown]
  - Blood disorder [Unknown]
